FAERS Safety Report 14189014 (Version 1)
Quarter: 2017Q4

REPORT INFORMATION
  Report Type: Spontaneous
  Country: JP (occurrence: JP)
  Receive Date: 20171115
  Receipt Date: 20171115
  Transmission Date: 20180321
  Serious: Yes (Other)
  Sender: FDA-Public Use
  Company Number: JP-MITSUBISHI TANABE PHARMA CORPORATION-MTPC2017-0023416

PATIENT
  Age: 70 Year
  Sex: Female

DRUGS (1)
  1. RADICUT [Suspect]
     Active Substance: EDARAVONE
     Route: 051

REACTIONS (2)
  - Cyst rupture [Unknown]
  - Pulmonary haemorrhage [Unknown]
